FAERS Safety Report 8435096-3 (Version None)
Quarter: 2012Q2

REPORT INFORMATION
  Report Type: 
  Country: None (occurrence: None)
  Receive Date: 20120614
  Receipt Date: 20120607
  Transmission Date: 20120825
  Serious: Yes (Hospitalization, Other)
  Sender: FDA-Public Use
  Company Number: PHHY2011US30369

PATIENT
  Sex: Female

DRUGS (5)
  1. SYNTHROID [Concomitant]
     Dosage: 112 UG, UNK
     Route: 048
  2. TENORMIN [Concomitant]
     Dosage: 75 MG, (50MG AM/ 25 MG PM)
     Route: 048
  3. GLEEVEC [Suspect]
     Indication: CHRONIC MYELOID LEUKAEMIA
     Dosage: 400 MG,DAILY
     Route: 048
     Dates: start: 20110311
  4. ALLOPURINOL [Concomitant]
     Dosage: 300 MG, UNK
     Route: 048
  5. POTASSIUM CHLORIDE [Concomitant]
     Dosage: 20 MEQ, UNK
     Route: 048

REACTIONS (5)
  - BLOOD PRESSURE INCREASED [None]
  - ATRIAL FIBRILLATION [None]
  - BONE PAIN [None]
  - CARDIAC DISORDER [None]
  - MUSCLE SPASMS [None]
